FAERS Safety Report 13776557 (Version 1)
Quarter: 2017Q3

REPORT INFORMATION
  Report Type: Spontaneous
  Country: JP (occurrence: JP)
  Receive Date: 20170721
  Receipt Date: 20170721
  Transmission Date: 20171127
  Serious: Yes (Death)
  Sender: FDA-Public Use
  Company Number: JP-ASTELLAS-2017US029063

PATIENT
  Age: 83 Year

DRUGS (2)
  1. AMBISOME [Suspect]
     Active Substance: AMPHOTERICIN B
     Indication: PNEUMONIA FUNGAL
     Dosage: UNK, UNKNOWN FREQ.
     Route: 065
     Dates: start: 201707
  2. FUNGUARD [Concomitant]
     Active Substance: MICAFUNGIN SODIUM
     Indication: PRODUCT USED FOR UNKNOWN INDICATION
     Dosage: UNK UNK, UNKNOWN FREQ.
     Route: 065
     Dates: start: 201707

REACTIONS (1)
  - Pneumonia [Fatal]

NARRATIVE: CASE EVENT DATE: 201707
